FAERS Safety Report 4552134-9 (Version None)
Quarter: 2005Q1

REPORT INFORMATION
  Report Type: 
  Country: None (occurrence: None)
  Receive Date: 20050112
  Receipt Date: 20041221
  Transmission Date: 20050727
  Serious: No
  Sender: FDA-Public Use
  Company Number: USA041286162

PATIENT
  Age: 30 Year
  Sex: Female

DRUGS (10)
  1. CYMBALTA [Suspect]
     Indication: DEPRESSION
     Dosage: 60 MG
     Dates: start: 20040915, end: 20041028
  2. LITHIUM [Concomitant]
  3. TOPAMAX [Concomitant]
  4. ALPHACUTANEE (CHYMOTRYPSIN) [Concomitant]
  5. CONTRACEPTIVE PILL (ORAL CONTRACEPTIVE NOS) [Concomitant]
  6. ELAVIL [Concomitant]
  7. ATARAX (ALPRAZOLAM DUM) [Concomitant]
  8. PYRIDIUM (PHENAZOPYRIDINE HYDROCHLORIDE) [Concomitant]
  9. HEPARIN [Concomitant]
  10. VICODIN [Concomitant]

REACTIONS (6)
  - ABDOMINAL PAIN [None]
  - CONSTIPATION [None]
  - DYSKINESIA [None]
  - MUSCLE TWITCHING [None]
  - NAUSEA [None]
  - SEXUAL DYSFUNCTION [None]
